FAERS Safety Report 24805434 (Version 1)
Quarter: 2025Q1

REPORT INFORMATION
  Report Type: Other
  Country: CN (occurrence: CN)
  Receive Date: 20250103
  Receipt Date: 20250103
  Transmission Date: 20250409
  Serious: Yes (Hospitalization)
  Sender: PARATEK PHARMACEUTICALS
  Company Number: CN-PARATEK PHARMACEUTICALS, INC.-2024PTK01213

PATIENT
  Age: 81 Year
  Sex: Male
  Weight: 60 kg

DRUGS (3)
  1. NUZYRA [Suspect]
     Active Substance: OMADACYCLINE
     Indication: Pneumonia
     Dosage: 0.2 G, QD
     Route: 041
     Dates: start: 20241213, end: 20241213
  2. NUZYRA [Suspect]
     Active Substance: OMADACYCLINE
     Dosage: 0.1 G, QD
     Route: 041
     Dates: start: 20241214, end: 20241215
  3. MICAFUNGIN SODIUM [Suspect]
     Active Substance: MICAFUNGIN SODIUM
     Indication: Pneumonia
     Dosage: 100 MG, QD
     Route: 041
     Dates: start: 20241211, end: 20241217

REACTIONS (1)
  - Rash maculo-papular [Recovering/Resolving]

NARRATIVE: CASE EVENT DATE: 20241215
